FAERS Safety Report 5409231-5 (Version None)
Quarter: 2007Q3

REPORT INFORMATION
  Report Type: 
  Country: None (occurrence: None)
  Receive Date: 20070808
  Receipt Date: 20070808
  Transmission Date: 20080115
  Serious: Yes (Other)
  Sender: FDA-Public Use
  Company Number: None

PATIENT
  Age: 47 Year
  Sex: Male
  Weight: 84.5 kg

DRUGS (1)
  1. ENBREL [Suspect]
     Indication: THROMBOCYTOPENIA
     Dosage: 50MG TWICE WEEKLY SUBCUT
     Route: 058
     Dates: start: 20041110, end: 20070705

REACTIONS (1)
  - THROMBOCYTOPENIA [None]
